FAERS Safety Report 8412316-2 (Version None)
Quarter: 2012Q2

REPORT INFORMATION
  Report Type: 
  Country: None (occurrence: None)
  Receive Date: 20120605
  Receipt Date: 20120514
  Transmission Date: 20120825
  Serious: No
  Sender: FDA-Public Use
  Company Number: US-AMGEN-USASP2012030248

PATIENT
  Age: 70 Year
  Sex: Female

DRUGS (2)
  1. ENBREL [Suspect]
     Indication: PSORIATIC ARTHROPATHY
     Dosage: 50 MG, QWK
     Dates: start: 20111030, end: 20120504
  2. METHOTREXATE [Concomitant]
     Dosage: 7 MG, UNK
     Dates: start: 20040101

REACTIONS (3)
  - BRONCHITIS [None]
  - JOINT SWELLING [None]
  - OEDEMA PERIPHERAL [None]
